FAERS Safety Report 9322432 (Version 2)
Quarter: 2013Q3

REPORT INFORMATION
  Report Type: Spontaneous
  Country: US (occurrence: US)
  Receive Date: 20130531
  Receipt Date: 20130731
  Transmission Date: 20140515
  Serious: Yes (Hospitalization, Other)
  Sender: FDA-Public Use
  Company Number: US-009507513-1305USA016337

PATIENT
  Sex: 0

DRUGS (3)
  1. HEXADROL TABLETS [Suspect]
     Indication: HAEMATOLOGICAL MALIGNANCY
     Dosage: 40 MG, QD
     Route: 048
  2. LEVEMIR [Concomitant]
     Indication: DIABETES MELLITUS
     Dosage: UNK, BID
     Route: 058
  3. NOVOLOG [Concomitant]
     Indication: DIABETES MELLITUS
     Route: 058

REACTIONS (1)
  - Diabetic ketoacidosis [Unknown]
